FAERS Safety Report 15744167 (Version 2)
Quarter: 2019Q1

REPORT INFORMATION
  Report Type: Report from Study
  Country: CN (occurrence: CN)
  Receive Date: 20181220
  Receipt Date: 20190131
  Transmission Date: 20190417
  Serious: Yes (Death, Hospitalization)
  Sender: FDA-Public Use
  Company Number: CN-ROCHE-2202054

PATIENT
  Age: 58 Year
  Sex: Female
  Weight: 50 kg

DRUGS (14)
  1. MAGNESIUM ISOGLYCYRRHIZINATE [Concomitant]
     Active Substance: MAGNESIUM ISOGLYCYRRHIZINATE
     Indication: ASPARTATE AMINOTRANSFERASE INCREASED
     Route: 065
     Dates: start: 20181004, end: 20181011
  2. LEVOFLOXACIN HYDROCHLORIDE [Concomitant]
     Active Substance: LEVOFLOXACIN HYDROCHLORIDE
     Dosage: ANTI-INFLAMMATORY
     Route: 065
     Dates: start: 20181025, end: 20181028
  3. POTASSIUM CHLORIDE. [Concomitant]
     Active Substance: POTASSIUM CHLORIDE
     Route: 065
     Dates: start: 20181027, end: 20181027
  4. ESOMEPRAZOLE SODIUM. [Concomitant]
     Active Substance: ESOMEPRAZOLE SODIUM
     Route: 065
     Dates: start: 20181004, end: 20181009
  5. SODIUM CHLORIDE. [Concomitant]
     Active Substance: SODIUM CHLORIDE
     Dosage: ANTI-INFLAMMATORY
     Route: 065
     Dates: start: 20181025, end: 20181028
  6. LAPATINIB [Suspect]
     Active Substance: LAPATINIB
     Indication: HER-2 POSITIVE BREAST CANCER
     Dosage: DATE OF LAST DOSE (1250 MG) PRIOR TO SAE ONSET: 15/OCT/2018.
     Route: 048
     Dates: start: 20180319
  7. SODIUM IBANDRONATE [Concomitant]
     Active Substance: IBANDRONATE SODIUM
     Route: 065
     Dates: start: 20181015, end: 20181015
  8. POLYENE PHOSPHATIDYLCHOLINE [Concomitant]
     Active Substance: PHOSPHOLIPID
     Indication: ASPARTATE AMINOTRANSFERASE INCREASED
     Route: 065
     Dates: start: 20181012, end: 20181028
  9. CAPECITABINE. [Suspect]
     Active Substance: CAPECITABINE
     Indication: HER-2 POSITIVE BREAST CANCER
     Dosage: ON DAYS 1-14 OF EACH 21 DAY CYCLE (AS PER PROTOCOL).?DATE OF LAST DOSE (1450 MG) PRIOR TO SAE ONSET:
     Route: 048
     Dates: start: 20180319
  10. SODIUM IBANDRONATE [Concomitant]
     Active Substance: IBANDRONATE SODIUM
     Indication: BONE OPERATION
     Route: 065
     Dates: start: 20180918, end: 20180918
  11. LOPERAMIDE HYDROCHLORIDE. [Concomitant]
     Active Substance: LOPERAMIDE HYDROCHLORIDE
     Indication: DIARRHOEA
     Route: 065
     Dates: start: 20180919, end: 20180921
  12. BICYCLOL [Concomitant]
     Active Substance: BICYCLOL
     Indication: ASPARTATE AMINOTRANSFERASE INCREASED
     Route: 065
     Dates: start: 20181011, end: 20181029
  13. ESOMEPRAZOLE SODIUM. [Concomitant]
     Active Substance: ESOMEPRAZOLE SODIUM
     Route: 065
     Dates: start: 20181011, end: 20181016
  14. RABEPRAZOLE SODIUM. [Concomitant]
     Active Substance: RABEPRAZOLE SODIUM
     Route: 065
     Dates: start: 20181009, end: 20181011

REACTIONS (1)
  - Ascites [Fatal]

NARRATIVE: CASE EVENT DATE: 20181004
